FAERS Safety Report 8383679-1 (Version None)
Quarter: 2012Q2

REPORT INFORMATION
  Report Type: 
  Country: None (occurrence: None)
  Receive Date: 20120524
  Receipt Date: 20111107
  Transmission Date: 20120825
  Serious: Yes (Death, Hospitalization)
  Sender: FDA-Public Use
  Company Number: US-ROCHE-1013149

PATIENT
  Sex: Female

DRUGS (3)
  1. HERCEPTIN [Suspect]
     Dosage: OVER 30 MINS ON DAY 8,15,22,289,36,43
     Route: 042
     Dates: end: 20090408
  2. HERCEPTIN [Suspect]
     Indication: BLADDER CANCER
     Dosage: OVER 90 MINS ON DAY 1
     Route: 042
     Dates: start: 20090316
  3. PACLITAXEL [Suspect]
     Indication: BLADDER CANCER
     Dosage: OVER ONE HOUR ON DAY,1,8,15,22,29,36,43
     Route: 042
     Dates: start: 20090316

REACTIONS (1)
  - SMALL INTESTINAL PERFORATION [None]
